FAERS Safety Report 11656762 (Version 2)
Quarter: 2015Q4

REPORT INFORMATION
  Report Type: Report from Study
  Country: US (occurrence: US)
  Receive Date: 20151023
  Receipt Date: 20151027
  Transmission Date: 20160304
  Serious: Yes (Hospitalization)
  Sender: FDA-Public Use
  Company Number: US-ABBVIE-15P-163-1426855-00

PATIENT
  Sex: Female
  Weight: 49.94 kg

DRUGS (4)
  1. IRON [Concomitant]
     Active Substance: IRON
     Indication: ANAEMIA
  2. LYSTEDA [Concomitant]
     Active Substance: TRANEXAMIC ACID
     Indication: VAGINAL HAEMORRHAGE
     Dosage: TOOK FOR A FEW DAYS
  3. LUPRON DEPOT [Suspect]
     Active Substance: LEUPROLIDE ACETATE
     Indication: UTERINE LEIOMYOMA
     Route: 065
  4. LUPRON DEPOT [Suspect]
     Active Substance: LEUPROLIDE ACETATE
     Indication: VAGINAL HAEMORRHAGE

REACTIONS (2)
  - Uterine leiomyoma [Recovering/Resolving]
  - Vaginal haemorrhage [Recovering/Resolving]

NARRATIVE: CASE EVENT DATE: 2015
